FAERS Safety Report 9859371 (Version 1)
Quarter: 2014Q1

REPORT INFORMATION
  Report Type: Report from Study
  Country: US (occurrence: US)
  Receive Date: 20140131
  Receipt Date: 20140131
  Transmission Date: 20141002
  Serious: Yes (Life-Threatening, Hospitalization, Other)
  Sender: FDA-Public Use
  Company Number: US-PFIZER INC-2014027222

PATIENT
  Age: 62 Year
  Sex: Female
  Weight: 43.54 kg

DRUGS (10)
  1. OXALIPLATIN [Suspect]
     Indication: OESOPHAGEAL CANCER METASTATIC
     Dosage: 63.75 MG/M2, CYCLIC, EVERY 2 WEEKS
     Route: 042
     Dates: start: 20131105
  2. FLUOROURACIL [Suspect]
     Indication: OESOPHAGEAL CANCER METASTATIC
     Dosage: 400 MG, CYCLIC, EVERY 2 WEEKS
     Route: 042
     Dates: start: 20131105
  3. LEUCOVORIN [Suspect]
     Indication: OESOPHAGEAL CANCER METASTATIC
     Dosage: 400 MG/M2, CYCLIC, EVERY 2 WEEKS
     Route: 042
     Dates: start: 20131105
  4. GS-5745 [Suspect]
     Indication: OESOPHAGEAL CANCER METASTATIC
     Dosage: 800 MG, CYCLIC, EVERY 2 WEEKS
     Route: 042
     Dates: start: 20131105
  5. GRANULOCYTE COLONY-STIMULATING FACTOR NOS [Concomitant]
     Dosage: UNK
     Dates: start: 20131203
  6. PREDNISONE [Concomitant]
     Dosage: UNK
     Dates: start: 20131018
  7. LORAZEPAM [Concomitant]
     Dosage: UNK
     Dates: start: 201211
  8. OXYCODONE [Concomitant]
     Dosage: UNK
     Dates: start: 20130707
  9. OMEPRAZOLE [Concomitant]
     Dosage: UNK
     Dates: start: 2006
  10. CALCIUM [Concomitant]
     Dosage: UNK
     Dates: start: 2006

REACTIONS (2)
  - Septic shock [Not Recovered/Not Resolved]
  - Acute respiratory failure [Not Recovered/Not Resolved]
